FAERS Safety Report 5474730-7 (Version None)
Quarter: 2007Q3

REPORT INFORMATION
  Report Type: 
  Country: None (occurrence: None)
  Receive Date: 20070927
  Receipt Date: 20070927
  Transmission Date: 20080115
  Serious: Yes (Death)
  Sender: FDA-Public Use
  Company Number: None

PATIENT
  Age: 8 Year
  Sex: Female

DRUGS (4)
  1. DIPHENHYDRAMINE HYDROCHLORIDE [Suspect]
     Dosage: 12.5 MG
  2. HALOPERIDOL [Suspect]
  3. RISPERIDONE [Suspect]
     Dosage: 0.25 MG TABLET
     Route: 048
  4. CHLORPROMAZINE HYDROCHLORIDE [Suspect]
     Dosage: 25 MG/ML (INJECTABLE)

REACTIONS (19)
  - ACIDOSIS [None]
  - BRAIN DEATH [None]
  - BRAIN HERNIATION [None]
  - BRAIN HYPOXIA [None]
  - BRAIN OEDEMA [None]
  - BRONCHOPNEUMONIA [None]
  - CEREBRAL INFARCTION [None]
  - CEREBRAL ISCHAEMIA [None]
  - CHOLESTASIS [None]
  - ELECTROENCEPHALOGRAM ABNORMAL [None]
  - GENERAL PHYSICAL HEALTH DETERIORATION [None]
  - HEART RATE INCREASED [None]
  - HEPATIC NECROSIS [None]
  - INTRACRANIAL PRESSURE INCREASED [None]
  - MULTI-ORGAN FAILURE [None]
  - NEUROLEPTIC MALIGNANT SYNDROME [None]
  - RHABDOMYOLYSIS [None]
  - SEPSIS [None]
  - URINE OUTPUT DECREASED [None]
